FAERS Safety Report 5964065-8 (Version None)
Quarter: 2008Q4

REPORT INFORMATION
  Report Type: 
  Country: None (occurrence: None)
  Receive Date: 20081124
  Receipt Date: 20081112
  Transmission Date: 20090506
  Serious: Yes (Other)
  Sender: FDA-Public Use
  Company Number: BR-ELI_LILLY_AND_COMPANY-BR200811002749

PATIENT

DRUGS (2)
  1. CYMBALTA [Suspect]
     Dosage: 30 MG, 2/D
     Route: 048
     Dates: start: 20070101
  2. FINASTERIDE [Concomitant]
     Dosage: UNK, UNKNOWN
     Route: 065

REACTIONS (1)
  - HEPATITIS [None]
